FAERS Safety Report 21051790 (Version 1)
Quarter: 2022Q3

REPORT INFORMATION
  Report Type: Spontaneous
  Country: US (occurrence: None)
  Receive Date: 20220706
  Receipt Date: 20220706
  Transmission Date: 20221026
  Serious: No
  Sender: FDA-Public Use
  Company Number: None

PATIENT
  Sex: Female

DRUGS (1)
  1. TREMFYA [Suspect]
     Active Substance: GUSELKUMAB
     Indication: Psoriatic arthropathy
     Dosage: 100MG EVERY 8 WEEKS UNDER THE SKIN?
     Route: 058
     Dates: start: 20210723

REACTIONS (5)
  - Psoriasis [None]
  - Gait inability [None]
  - White blood cell count decreased [None]
  - Alopecia [None]
  - Thyroid disorder [None]
